APPROVED DRUG PRODUCT: DURACLON
Active Ingredient: CLONIDINE HYDROCHLORIDE
Strength: 5MG/10ML (0.5MG/ML) **Federal Register determination that product was not discontinued or withdrawn for safety or effectiveness reasons**
Dosage Form/Route: INJECTABLE;INJECTION
Application: N020615 | Product #002
Applicant: MYLAN INSTITUTIONAL LLC
Approved: Apr 27, 1999 | RLD: Yes | RS: No | Type: DISCN